FAERS Safety Report 12500997 (Version 1)
Quarter: 2016Q2

REPORT INFORMATION
  Report Type: Spontaneous
  Country: US (occurrence: US)
  Receive Date: 20160627
  Receipt Date: 20160627
  Transmission Date: 20160815
  Serious: Yes (Hospitalization, Other)
  Sender: FDA-Public Use
  Company Number: US-JNJFOC-20160618067

PATIENT

DRUGS (2)
  1. LEVAQUIN [Suspect]
     Active Substance: LEVOFLOXACIN
     Indication: PRODUCT USED FOR UNKNOWN INDICATION
     Route: 065
     Dates: start: 200801
  2. LEVAQUIN [Suspect]
     Active Substance: LEVOFLOXACIN
     Indication: PRODUCT USED FOR UNKNOWN INDICATION
     Route: 065
     Dates: start: 200712

REACTIONS (6)
  - Neuropathy peripheral [Not Recovered/Not Resolved]
  - Skin disorder [Unknown]
  - Musculoskeletal disorder [Unknown]
  - Psychiatric symptom [Unknown]
  - Aortic aneurysm [Unknown]
  - Sensory disturbance [Unknown]
